FAERS Safety Report 5179646-1 (Version None)
Quarter: 2006Q4

REPORT INFORMATION
  Report Type: 
  Country: None (occurrence: None)
  Receive Date: 20061212
  Receipt Date: 20061128
  Transmission Date: 20070319
  Serious: Yes (Death)
  Sender: FDA-Public Use
  Company Number: ST-2006-009401

PATIENT
  Age: 61 Year
  Sex: Male

DRUGS (8)
  1. OLMETEC [Suspect]
     Indication: HYPERTENSION
     Dosage: 20 MG BID PO
     Route: 048
     Dates: start: 20040807, end: 20061127
  2. MEVALOTIN [Suspect]
     Indication: HYPERLIPIDAEMIA
     Dosage: 10 MG QD PO
     Route: 048
     Dates: start: 20060309, end: 20061127
  3. ZANTAC [Suspect]
     Indication: GASTRIC ULCER
     Dosage: 75 MG BID PO
     Route: 048
     Dates: start: 20030106, end: 20061127
  4. NORVASC [Suspect]
     Indication: HYPERTENSION
     Dosage: 5 MG BID PO
     Route: 048
     Dates: start: 20020119, end: 20061127
  5. ETIZOLAM [Suspect]
     Dosage: 0.5 MG TID PO
     Route: 048
     Dates: end: 20061127
  6. PL GRAN [Concomitant]
  7. NICHOLASE [Concomitant]
  8. HUSCODE [Concomitant]

REACTIONS (1)
  - INTERSTITIAL LUNG DISEASE [None]
